FAERS Safety Report 14548336 (Version 1)
Quarter: 2018Q1

REPORT INFORMATION
  Report Type: Spontaneous
  Country: US (occurrence: US)
  Receive Date: 20180219
  Receipt Date: 20180219
  Transmission Date: 20180509
  Serious: No
  Sender: FDA-Public Use
  Company Number: US-ROCHE-1889424

PATIENT
  Sex: Male

DRUGS (1)
  1. XOLAIR [Suspect]
     Active Substance: OMALIZUMAB
     Indication: ASTHMA
     Route: 058

REACTIONS (7)
  - Pulmonary congestion [Not Recovered/Not Resolved]
  - Asthma [Not Recovered/Not Resolved]
  - Injection site pain [Recovered/Resolved]
  - Weight increased [Not Recovered/Not Resolved]
  - Needle issue [Unknown]
  - Nasal congestion [Not Recovered/Not Resolved]
  - Product quality issue [Unknown]
